FAERS Safety Report 14904288 (Version 4)
Quarter: 2021Q2

REPORT INFORMATION
  Report Type: Report from Study
  Country: US (occurrence: US)
  Receive Date: 20180516
  Receipt Date: 20210423
  Transmission Date: 20210716
  Serious: Yes (Other)
  Sender: FDA-Public Use
  Company Number: US-ROCHE-2084811

PATIENT
  Age: 60 Year
  Sex: Female
  Weight: 64.8 kg

DRUGS (14)
  1. DELTASONE [Concomitant]
     Active Substance: PREDNISONE
     Dates: start: 20180419
  2. TRASTUZUMAB. [Suspect]
     Active Substance: TRASTUZUMAB
     Route: 042
     Dates: start: 20180503
  3. PACLITAXEL. [Suspect]
     Active Substance: PACLITAXEL
     Indication: HER2 POSITIVE BREAST CANCER
     Route: 065
     Dates: start: 20170503, end: 20171109
  4. LOMOTIL [Concomitant]
     Active Substance: ATROPINE SULFATE\DIPHENOXYLATE HYDROCHLORIDE
     Dosage: DOSE: 2.5?0.25 MG PER TABLET
  5. PERTUZUMAB. [Suspect]
     Active Substance: PERTUZUMAB
     Indication: HER2 POSITIVE BREAST CANCER
     Route: 042
     Dates: start: 20170503, end: 20180419
  6. TRASTUZUMAB. [Suspect]
     Active Substance: TRASTUZUMAB
     Indication: HER2 POSITIVE BREAST CANCER
     Route: 042
     Dates: start: 20170503, end: 20180419
  7. DORYX (UNITED STATES) [Concomitant]
  8. PERTUZUMAB. [Suspect]
     Active Substance: PERTUZUMAB
     Route: 042
     Dates: start: 20180503
  9. PRINIVIL [Concomitant]
     Active Substance: LISINOPRIL
  10. TASELISIB. [Suspect]
     Active Substance: TASELISIB
     Route: 048
     Dates: start: 20180329, end: 20180419
  11. LOMOTIL [Concomitant]
     Active Substance: ATROPINE SULFATE\DIPHENOXYLATE HYDROCHLORIDE
     Dosage: 3?4 TO TIME DAILY.
  12. DELTASONE [Concomitant]
     Active Substance: PREDNISONE
     Dates: start: 20180503
  13. TASELISIB. [Suspect]
     Active Substance: TASELISIB
     Indication: HER2 POSITIVE BREAST CANCER
     Route: 048
     Dates: start: 20170503, end: 20180302
  14. DELTASONE [Concomitant]
     Active Substance: PREDNISONE
     Dates: start: 20180302

REACTIONS (2)
  - Colitis [Recovered/Resolved]
  - Diarrhoea [Recovered/Resolved]

NARRATIVE: CASE EVENT DATE: 20180301
